FAERS Safety Report 7151283-9 (Version None)
Quarter: 2010Q4

REPORT INFORMATION
  Report Type: 
  Country: None (occurrence: None)
  Receive Date: 20101210
  Receipt Date: 20101124
  Transmission Date: 20110411
  Serious: Yes (Life-Threatening)
  Sender: FDA-Public Use
  Company Number: JP-BAYER-200912609BYL

PATIENT
  Sex: Female
  Weight: 50 kg

DRUGS (6)
  1. NEXAVAR [Suspect]
     Route: 048
     Dates: start: 20090629, end: 20090721
  2. AMINOLEBAN EN [Concomitant]
     Dosage: 100 G (DAILY DOSE), , ORAL
     Route: 048
     Dates: start: 20081125
  3. PORTOLAC [Concomitant]
     Dosage: 18 G (DAILY DOSE), , ORAL
     Route: 048
     Dates: start: 20081021
  4. URSO 250 [Concomitant]
     Dosage: 600 MG (DAILY DOSE), , ORAL
     Route: 048
     Dates: start: 20081021, end: 20090721
  5. LASIX [Concomitant]
     Dosage: 40 MG (DAILY DOSE), , ORAL
     Route: 048
     Dates: start: 20081021
  6. ALDACTONE [Concomitant]
     Dosage: 25 MG (DAILY DOSE), , ORAL
     Route: 048
     Dates: start: 20081216

REACTIONS (5)
  - COMA HEPATIC [None]
  - GASTROINTESTINAL HAEMORRHAGE [None]
  - HEPATIC ENCEPHALOPATHY [None]
  - MELAENA [None]
  - PALMAR-PLANTAR ERYTHRODYSAESTHESIA SYNDROME [None]
